FAERS Safety Report 8851860 (Version 2)
Quarter: 2013Q2

REPORT INFORMATION
  Report Type: Spontaneous
  Country: US (occurrence: US)
  Receive Date: 20121022
  Receipt Date: 20130417
  Transmission Date: 20140414
  Serious: No
  Sender: FDA-Public Use
  Company Number: US-009507513-1210USA008150

PATIENT
  Sex: Male

DRUGS (2)
  1. INTRONA [Suspect]
     Indication: HEPATITIS C
     Dosage: UNK
     Dates: start: 2001, end: 200206
  2. REBETOL [Suspect]
     Indication: HEPATITIS C
     Dosage: UNK
     Dates: start: 2001, end: 200206

REACTIONS (2)
  - Hypothyroidism [Unknown]
  - Incorrect drug administration duration [Unknown]
